FAERS Safety Report 20338669 (Version 1)
Quarter: 2022Q1

REPORT INFORMATION
  Report Type: Spontaneous
  Country: US (occurrence: US)
  Receive Date: 20220116
  Receipt Date: 20220116
  Transmission Date: 20220423
  Serious: No
  Sender: FDA-Public Use
  Company Number: US-ELI_LILLY_AND_COMPANY-US202112011262

PATIENT
  Sex: Female

DRUGS (3)
  1. HUMALOG [Suspect]
     Active Substance: INSULIN LISPRO
     Indication: Gestational diabetes
     Dosage: 17 U, UNKNOWN
     Route: 058
     Dates: start: 202109
  2. HUMALOG [Suspect]
     Active Substance: INSULIN LISPRO
     Dosage: 17 U, UNKNOWN
     Route: 058
  3. HUMULIN N [Suspect]
     Active Substance: INSULIN HUMAN
     Indication: Gestational diabetes
     Dosage: 18 U, UNKNOWN
     Route: 058
     Dates: start: 202109

REACTIONS (4)
  - Dyspepsia [Not Recovered/Not Resolved]
  - Cataract [Not Recovered/Not Resolved]
  - Maternal exposure during pregnancy [Unknown]
  - Product storage error [Unknown]
